FAERS Safety Report 17513659 (Version 1)
Quarter: 2020Q1

REPORT INFORMATION
  Report Type: Spontaneous
  Country: GB (occurrence: GB)
  Receive Date: 20200308
  Receipt Date: 20200308
  Transmission Date: 20200409
  Serious: Yes (Disabling)
  Sender: FDA-Public Use
  Company Number: GB-TEVA-2020-GB-1195708

PATIENT
  Age: 71 Year
  Sex: Female
  Weight: 81.4 kg

DRUGS (4)
  1. STEXEROL-D3 [Concomitant]
  2. SODIUM VALPROATE [Suspect]
     Active Substance: VALPROATE SODIUM
     Indication: BIPOLAR DISORDER
     Dosage: VARIABLE DOSES
     Route: 048
     Dates: end: 20190924
  3. LAXIDO [Concomitant]
     Active Substance: POLYETHYLENE GLYCOL 3350\POTASSIUM CHLORIDE\SODIUM BICARBONATE\SODIUM CHLORIDE
  4. CASSIA [Concomitant]

REACTIONS (2)
  - Dementia [Unknown]
  - Cognitive disorder [Recovering/Resolving]
